FAERS Safety Report 25991093 (Version 1)
Quarter: 2025Q4

REPORT INFORMATION
  Report Type: Spontaneous
  Country: US (occurrence: US)
  Receive Date: 20251103
  Receipt Date: 20251103
  Transmission Date: 20260117
  Serious: No
  Sender: MYLAN
  Company Number: US-MYLANLABS-2025M1090558

PATIENT
  Sex: Male

DRUGS (1)
  1. PROCTOFOAM HC [Suspect]
     Active Substance: HYDROCORTISONE ACETATE\PRAMOXINE HYDROCHLORIDE
     Indication: Rectal tenesmus
     Dosage: UNK UNK, QD (ONE TIME A DAY)

REACTIONS (2)
  - Product use issue [Unknown]
  - Product use in unapproved indication [Unknown]
